FAERS Safety Report 18861773 (Version 7)
Quarter: 2021Q1

REPORT INFORMATION
  Report Type: Spontaneous
  Country: PT (occurrence: PT)
  Receive Date: 20210208
  Receipt Date: 20210301
  Transmission Date: 20210420
  Serious: Yes (Hospitalization, Other)
  Sender: FDA-Public Use
  Company Number: NVSC2021PT029422

PATIENT
  Age: 53 Year
  Sex: Female

DRUGS (4)
  1. IBUPROFEN. [Interacting]
     Active Substance: IBUPROFEN
     Dosage: 1 DF, Q8H
     Route: 065
  2. LITHIUM. [Interacting]
     Active Substance: LITHIUM
     Indication: ARTHRALGIA
     Dosage: UNK, QD
     Route: 048
  3. LITHIUM. [Interacting]
     Active Substance: LITHIUM
     Indication: BIPOLAR DISORDER
     Dosage: 400 MG, BID (800 MG, QD)
     Route: 048
  4. IBUPROFEN. [Suspect]
     Active Substance: IBUPROFEN
     Indication: ARTHRALGIA
     Dosage: 600 MILLIGRAM, Q8H
     Route: 048

REACTIONS (9)
  - Labelled drug-drug interaction medication error [Recovered/Resolved]
  - Toxicity to various agents [Recovered/Resolved]
  - Disorientation [Unknown]
  - Antipsychotic drug level above therapeutic [Recovered/Resolved]
  - Dyskinesia [Unknown]
  - Dysarthria [Unknown]
  - Drug interaction [Unknown]
  - Consciousness fluctuating [Unknown]
  - Gait disturbance [Unknown]
